FAERS Safety Report 6289496-0 (Version None)
Quarter: 2009Q3

REPORT INFORMATION
  Report Type: 
  Country: None (occurrence: None)
  Receive Date: 20090730
  Receipt Date: 20090728
  Transmission Date: 20100115
  Serious: Yes (Hospitalization)
  Sender: FDA-Public Use
  Company Number: FR-JNJFOC-20090708892

PATIENT
  Age: 81 Year
  Sex: Male

DRUGS (3)
  1. TAVANIC [Suspect]
     Indication: LUNG DISORDER
     Route: 065
  2. AUGMENTIN [Suspect]
     Indication: PROPHYLAXIS
     Route: 048
  3. DALACINE [Suspect]
     Indication: PROPHYLAXIS
     Route: 048

REACTIONS (2)
  - CONDITION AGGRAVATED [None]
  - RASH [None]
